FAERS Safety Report 23766966 (Version 1)
Quarter: 2024Q2

REPORT INFORMATION
  Report Type: Spontaneous
  Country: US (occurrence: US)
  Receive Date: 20240422
  Receipt Date: 20240422
  Transmission Date: 20240715
  Serious: Yes (Hospitalization)
  Sender: FDA-Public Use
  Company Number: US-drreddys-LIT/USA/22/0153061

PATIENT
  Age: 11 Year
  Sex: Female

DRUGS (8)
  1. LENALIDOMIDE [Suspect]
     Active Substance: LENALIDOMIDE
     Indication: Central nervous system neoplasm
     Dosage: ON DAYS 1-21 OF EACH 28-DAY CYCLE
  2. LENALIDOMIDE [Suspect]
     Active Substance: LENALIDOMIDE
     Indication: Peripheral nervous system neoplasm
  3. LENALIDOMIDE [Suspect]
     Active Substance: LENALIDOMIDE
     Indication: Neoplasm recurrence
  4. LENALIDOMIDE [Suspect]
     Active Substance: LENALIDOMIDE
     Indication: Astrocytoma
  5. TRAMETINIB [Suspect]
     Active Substance: TRAMETINIB
     Indication: Central nervous system neoplasm
  6. TRAMETINIB [Suspect]
     Active Substance: TRAMETINIB
     Indication: Peripheral nervous system neoplasm
  7. TRAMETINIB [Suspect]
     Active Substance: TRAMETINIB
     Indication: Neoplasm recurrence
  8. TRAMETINIB [Suspect]
     Active Substance: TRAMETINIB
     Indication: Astrocytoma

REACTIONS (4)
  - Drug interaction [Unknown]
  - Cardiac ventricular thrombosis [Recovered/Resolved]
  - Ventricular dysfunction [Recovered/Resolved]
  - Embolism [Recovered/Resolved]
